FAERS Safety Report 25136789 (Version 3)
Quarter: 2025Q2

REPORT INFORMATION
  Report Type: Report from Study
  Country: CA (occurrence: CA)
  Receive Date: 20250328
  Receipt Date: 20250424
  Transmission Date: 20250717
  Serious: Yes (Other)
  Sender: IPSEN BIOPHARMACEUTICALS, INC.
  Company Number: CA-IPSEN Group, Research and Development-2025-02231

PATIENT
  Age: 80 Year
  Sex: Female

DRUGS (6)
  1. LANREOTIDE ACETATE [Suspect]
     Active Substance: LANREOTIDE ACETATE
     Indication: Gastroenteropancreatic neuroendocrine tumour disease
     Dosage: DEEP SUBCUTANEOUS
     Route: 058
     Dates: start: 20240223
  2. METOPROLOL [Concomitant]
     Active Substance: METOPROLOL
     Dosage: 50MG 4 TABLETS DAILY
  3. PANTOPRAZOLE [Concomitant]
     Active Substance: PANTOPRAZOLE
     Dosage: 40MG 2 TABLETS DAILY
  4. APIXABAN [Concomitant]
     Active Substance: APIXABAN
     Dosage: 5MG 2 TABLETS DAILY
  5. VITAMIN B12 [Concomitant]
     Active Substance: CYANOCOBALAMIN
     Dosage: 1000 MCG DAILY
  6. VITAMIN D [Concomitant]
     Active Substance: VITAMIN D NOS
     Dosage: DAILY

REACTIONS (16)
  - Hepatic neoplasm [Unknown]
  - Bone neoplasm [Not Recovered/Not Resolved]
  - Nasal congestion [Recovered/Resolved]
  - Sinus congestion [Recovered/Resolved]
  - Musculoskeletal chest pain [Recovered/Resolved]
  - Pain [Recovered/Resolved]
  - Dyspnoea [Recovered/Resolved]
  - Musculoskeletal chest pain [Recovered/Resolved]
  - Back pain [Recovered/Resolved]
  - Dyspnoea [Recovered/Resolved]
  - Arthralgia [Recovered/Resolved]
  - Tenderness [Not Recovered/Not Resolved]
  - Blister [Not Recovered/Not Resolved]
  - Wound [Recovered/Resolved]
  - Vital signs measurement [Unknown]
  - Spondylitis [Not Recovered/Not Resolved]

NARRATIVE: CASE EVENT DATE: 20250101
